FAERS Safety Report 16120014 (Version 1)
Quarter: 2019Q1

REPORT INFORMATION
  Report Type: Other
  Country: US (occurrence: US)
  Receive Date: 20190326
  Receipt Date: 20190326
  Transmission Date: 20190418
  Serious: Yes (Other)
  Sender: FDA-Public Use
  Company Number: US-GUTHY-RENKER, LLC-2064673

PATIENT
  Age: 67 Year
  Sex: Female

DRUGS (1)
  1. MEANINGFUL BEAUTY DARK SPOT CORRECTING TREATMENT [Suspect]
     Active Substance: HYDROQUINONE
     Dates: start: 201812, end: 20190307

REACTIONS (5)
  - Paraesthesia oral [None]
  - Eye swelling [None]
  - Application site pruritus [None]
  - Lip swelling [None]
  - Urticaria [Recovering/Resolving]

NARRATIVE: CASE EVENT DATE: 20190308
